FAERS Safety Report 25830593 (Version 1)
Quarter: 2025Q3

REPORT INFORMATION
  Report Type: Spontaneous
  Country: US (occurrence: US)
  Receive Date: 20250922
  Receipt Date: 20250922
  Transmission Date: 20251020
  Serious: No
  Sender: SANOFI AVENTIS
  Company Number: US-SA-2025SA281594

PATIENT
  Age: 35 Year
  Sex: Male

DRUGS (5)
  1. ALTUVIIIO [Suspect]
     Active Substance: EFANESOCTOCOG ALFA
     Indication: Factor VIII deficiency
     Dosage: 4500 IU, QW
     Route: 042
  2. VICODIN HP [Concomitant]
     Active Substance: ACETAMINOPHEN\HYDROCODONE BITARTRATE
  3. LISINOPRIL [Concomitant]
     Active Substance: LISINOPRIL
  4. IRON [Concomitant]
     Active Substance: IRON
  5. KEPPRA [Concomitant]
     Active Substance: LEVETIRACETAM

REACTIONS (1)
  - Haemorrhage [Unknown]
